FAERS Safety Report 4829593-7 (Version None)
Quarter: 2005Q4

REPORT INFORMATION
  Report Type: 
  Country: None (occurrence: None)
  Receive Date: 20051116
  Receipt Date: 20051027
  Transmission Date: 20060501
  Serious: Yes (Life-Threatening, Hospitalization)
  Sender: FDA-Public Use
  Company Number: PL-ROCHE-422710

PATIENT
  Age: 54 Year
  Sex: Male
  Weight: 70 kg

DRUGS (8)
  1. PEGASYS [Suspect]
     Route: 058
     Dates: start: 20050808, end: 20051015
  2. MIXTARD 30 HM [Concomitant]
     Indication: DIABETES MELLITUS
     Dosage: DOSAGE REGIMEN: 46 UNITS IN THE MORNING, 22 UNITS IN THE EVENING. TAKEN FOR A LONG TIME.
  3. ENARENAL [Concomitant]
     Dosage: TAKEN FOR A LONG TIME.
  4. AMLOZEK [Concomitant]
     Dosage: TAKEN FOR A LONG TIME.
  5. METOCARD [Concomitant]
     Dosage: TAKEN FOR A LONG TIME.
  6. ACARD [Concomitant]
  7. ALFADIOL [Concomitant]
     Dosage: TAKEN FOR A LONG TIME.
  8. CALPEROS [Concomitant]
     Dosage: TAKEN FOR A LONG TIME.

REACTIONS (7)
  - CONVULSION [None]
  - DEPRESSED LEVEL OF CONSCIOUSNESS [None]
  - HYPOGLYCAEMIA [None]
  - MENINGITIS [None]
  - PERICARDITIS [None]
  - PNEUMONIA [None]
  - STAPHYLOCOCCAL SEPSIS [None]
